FAERS Safety Report 12679474 (Version 1)
Quarter: 2016Q3

REPORT INFORMATION
  Report Type: Spontaneous
  Country: US (occurrence: None)
  Receive Date: 20160823
  Receipt Date: 20160823
  Transmission Date: 20161109
  Serious: Yes (Hospitalization)
  Sender: FDA-Public Use
  Company Number: None

PATIENT
  Age: 87 Year
  Sex: Male
  Weight: 80.9 kg

DRUGS (2)
  1. SPIROLACTONE [Suspect]
     Active Substance: SPIRONOLACTONE
     Indication: CARDIAC FAILURE CONGESTIVE
     Route: 048
     Dates: start: 20160425
  2. LISINOPRIL. [Suspect]
     Active Substance: LISINOPRIL
     Indication: CARDIAC FAILURE CONGESTIVE
     Route: 048
     Dates: start: 20160425

REACTIONS (10)
  - Cardioactive drug level increased [None]
  - Arthralgia [None]
  - Fall [None]
  - Acute kidney injury [None]
  - Hypotension [None]
  - Orthostatic hypotension [None]
  - Hyperkalaemia [None]
  - Musculoskeletal pain [None]
  - Dehydration [None]
  - Overdose [None]

NARRATIVE: CASE EVENT DATE: 20160504
